FAERS Safety Report 24022304 (Version 5)
Quarter: 2024Q3

REPORT INFORMATION
  Report Type: Report from Study
  Country: US (occurrence: US)
  Receive Date: 20240627
  Receipt Date: 20240710
  Transmission Date: 20241016
  Serious: No
  Sender: ROCHE
  Company Number: US-ROCHE-3485816

PATIENT
  Age: 11 Year
  Sex: Female

DRUGS (1)
  1. ROZLYTREK [Suspect]
     Active Substance: ENTRECTINIB
     Indication: Brain neoplasm malignant
     Dosage: 500 MG (200 MGX 2 CAPSULE+100 MG X 1 CAPSULE)
     Route: 048

REACTIONS (2)
  - Off label use [Unknown]
  - Asthenia [Unknown]
